FAERS Safety Report 4941607-2 (Version None)
Quarter: 2006Q1

REPORT INFORMATION
  Report Type: 
  Country: None (occurrence: None)
  Receive Date: 20060313
  Receipt Date: 20060306
  Transmission Date: 20060701
  Serious: Yes (Hospitalization)
  Sender: FDA-Public Use
  Company Number: US-BRISTOL-MYERS SQUIBB COMPANY-13305214

PATIENT
  Age: 53 Year
  Sex: Female

DRUGS (6)
  1. CETUXIMAB [Suspect]
     Indication: NON-SMALL CELL LUNG CANCER
     Route: 042
     Dates: start: 20060123, end: 20060123
  2. TAXOL [Suspect]
     Indication: NON-SMALL CELL LUNG CANCER
     Route: 042
     Dates: start: 20060130, end: 20060130
  3. CARBOPLATIN [Suspect]
     Indication: NON-SMALL CELL LUNG CANCER
     Route: 042
     Dates: start: 20060130, end: 20060130
  4. CAPTOPRIL [Concomitant]
     Dates: start: 19940701
  5. DIGOXIN [Concomitant]
     Dates: start: 19940701
  6. LASIX [Concomitant]
     Dates: start: 19940701

REACTIONS (3)
  - HAEMOPTYSIS [None]
  - LOBAR PNEUMONIA [None]
  - PNEUMONIA [None]
